FAERS Safety Report 9364909 (Version 2)
Quarter: 2013Q2

REPORT INFORMATION
  Report Type: Spontaneous
  Country: DE (occurrence: DE)
  Receive Date: 20130624
  Receipt Date: 20130624
  Transmission Date: 20140414
  Serious: Yes (Other)
  Sender: FDA-Public Use
  Company Number: DE-GLAXOSMITHKLINE-D0057397A

PATIENT
  Sex: Male

DRUGS (4)
  1. VIANI DISKUS [Suspect]
     Indication: ASTHMA
     Dosage: 300MCG TWICE PER DAY
     Route: 055
  2. AERODUR [Concomitant]
     Route: 055
  3. FLUTIDE DISKUS [Concomitant]
     Route: 055
  4. FORADIL [Concomitant]

REACTIONS (7)
  - Angina pectoris [Unknown]
  - Palpitations [Unknown]
  - Dyspnoea [Unknown]
  - Cardiac disorder [Unknown]
  - Chest discomfort [Unknown]
  - Nausea [Unknown]
  - Drug ineffective [Unknown]
